FAERS Safety Report 6162238-5 (Version None)
Quarter: 2009Q2

REPORT INFORMATION
  Report Type: 
  Country: None (occurrence: None)
  Receive Date: 20090417
  Receipt Date: 20090417
  Transmission Date: 20091009
  Serious: Yes (Death)
  Sender: FDA-Public Use
  Company Number: None

PATIENT
  Age: 50 Year
  Sex: Male
  Weight: 110.2241 kg

DRUGS (4)
  1. MORPHINE SULFATE [Suspect]
     Indication: HEPATIC CIRRHOSIS
     Dosage: 180-360 TABS 4 TIMES DAILY PO
     Route: 048
     Dates: start: 20070301, end: 20080323
  2. MORPHINE SULFATE [Suspect]
     Indication: PAIN
     Dosage: 180-360 TABS 4 TIMES DAILY PO
     Route: 048
     Dates: start: 20070301, end: 20080323
  3. MORPHINE SULFATE [Suspect]
  4. MORPHINE SULFATE [Suspect]

REACTIONS (1)
  - GENERAL PHYSICAL HEALTH DETERIORATION [None]
